FAERS Safety Report 17896891 (Version 1)
Quarter: 2020Q2

REPORT INFORMATION
  Report Type: Spontaneous
  Country: BG (occurrence: BG)
  Receive Date: 20200615
  Receipt Date: 20200615
  Transmission Date: 20200714
  Serious: Yes (Other)
  Sender: FDA-Public Use
  Company Number: BG-ASTRAZENECA-2020SE73996

PATIENT
  Age: 59 Year
  Sex: Male

DRUGS (5)
  1. METFORMIN [Concomitant]
     Active Substance: METFORMIN HYDROCHLORIDE
  2. GLIMEPIRID [Concomitant]
     Active Substance: GLIMEPIRIDE
     Route: 048
  3. XIGDUO XR [Suspect]
     Active Substance: DAPAGLIFLOZIN PROPANEDIOL\METFORMIN HYDROCHLORIDE
     Indication: TYPE 2 DIABETES MELLITUS
     Route: 048
     Dates: start: 201901
  4. GLICLAZIDE MR [Concomitant]
     Active Substance: GLICLAZIDE
     Dosage: 1 TABLET IN THE MORNING
  5. VILDAGLIPTIN/METFORMIN [Concomitant]
     Active Substance: METFORMIN HYDROCHLORIDE\VILDAGLIPTIN
     Dosage: 50/1000MG 2 TABLET DAILY
     Route: 048

REACTIONS (4)
  - Autoimmune thyroid disorder [Unknown]
  - Malaise [Unknown]
  - Dry skin [Unknown]
  - Weight decreased [Unknown]
